FAERS Safety Report 9528983 (Version 2)
Quarter: 2013Q3

REPORT INFORMATION
  Report Type: Spontaneous
  Country: US (occurrence: US)
  Receive Date: 20130917
  Receipt Date: 20130919
  Transmission Date: 20140515
  Serious: Yes (Other)
  Sender: FDA-Public Use
  Company Number: US-GILEAD-2013-0083422

PATIENT
  Sex: Female

DRUGS (5)
  1. LETAIRIS [Suspect]
     Indication: PULMONARY HYPERTENSION
     Dosage: 5 MG, QD
     Route: 048
     Dates: start: 201210
  2. LETAIRIS [Suspect]
     Indication: LUNG DISORDER
  3. LETAIRIS [Suspect]
     Indication: HEART DISEASE CONGENITAL
  4. TYVASO [Concomitant]
  5. ADCIRCA [Concomitant]

REACTIONS (1)
  - Cyanosis [Unknown]
